FAERS Safety Report 8261672-7 (Version None)
Quarter: 2012Q2

REPORT INFORMATION
  Report Type: 
  Country: None (occurrence: None)
  Receive Date: 20120405
  Receipt Date: 20120405
  Transmission Date: 20120825
  Serious: No
  Sender: FDA-Public Use
  Company Number: None

PATIENT
  Age: 9 Year
  Sex: Male
  Weight: 34.473 kg

DRUGS (1)
  1. TAMIFLU [Suspect]
     Indication: INFLUENZA
     Dosage: 60.0 MG
     Route: 048
     Dates: start: 20120403, end: 20120404

REACTIONS (5)
  - HALLUCINATION [None]
  - CRYING [None]
  - FEAR [None]
  - ABNORMAL BEHAVIOUR [None]
  - SPEECH DISORDER [None]
